FAERS Safety Report 7565786-6 (Version None)
Quarter: 2011Q2

REPORT INFORMATION
  Report Type: 
  Country: None (occurrence: None)
  Receive Date: 20110616
  Receipt Date: 20110602
  Transmission Date: 20111010
  Serious: Yes (Hospitalization)
  Sender: FDA-Public Use
  Company Number: 2011SP025585

PATIENT
  Age: 30 Year
  Sex: Male

DRUGS (1)
  1. SAPHRIS [Suspect]
     Indication: BIPOLAR DISORDER
     Dosage: 10 MG; BID; SL
     Route: 060
     Dates: start: 20110501, end: 20110526

REACTIONS (3)
  - SYNCOPE [None]
  - DIZZINESS [None]
  - BLOOD CREATINE PHOSPHOKINASE INCREASED [None]
